FAERS Safety Report 7701413-2 (Version None)
Quarter: 2011Q3

REPORT INFORMATION
  Report Type: 
  Country: None (occurrence: None)
  Receive Date: 20110819
  Receipt Date: 20110819
  Transmission Date: 20111222
  Serious: Yes (Hospitalization)
  Sender: FDA-Public Use
  Company Number: None

PATIENT
  Age: 64 Year
  Sex: Female
  Weight: 54.8 kg

DRUGS (3)
  1. CARBOPLATIN [Suspect]
     Indication: OVARIAN CANCER
     Dosage: AUC 5 IV
     Route: 042
     Dates: start: 20110815, end: 20110815
  2. PACLITAXEL [Suspect]
     Indication: OVARIAN CANCER
     Dosage: 175MG/M2 IV
     Route: 042
     Dates: start: 20110815, end: 20110815
  3. RIDAFOROLIMUS [Suspect]
     Indication: OVARIAN CANCER
     Dosage: 10 MG PO
     Route: 048
     Dates: start: 20110815

REACTIONS (9)
  - ABDOMINAL PAIN [None]
  - CHILLS [None]
  - CALCULUS URETERIC [None]
  - PYELONEPHRITIS [None]
  - ABDOMINAL DISCOMFORT [None]
  - PYREXIA [None]
  - URINARY TRACT INFECTION [None]
  - TINNITUS [None]
  - PHLEBOLITH [None]
